FAERS Safety Report 6584125-0 (Version None)
Quarter: 2010Q1

REPORT INFORMATION
  Report Type: 
  Country: None (occurrence: None)
  Receive Date: 20100216
  Receipt Date: 20100211
  Transmission Date: 20100710
  Serious: Yes (Life-Threatening, Hospitalization, Other)
  Sender: FDA-Public Use
  Company Number: CA-JNJFOC-20100205631

PATIENT
  Age: 70 Year
  Sex: Female
  Weight: 86 kg

DRUGS (7)
  1. CAELYX [Suspect]
     Indication: DRUG USE FOR UNKNOWN INDICATION
     Route: 042
  2. BENADRYL [Concomitant]
     Route: 042
  3. DEXAMETHASONE [Concomitant]
     Route: 042
  4. DIPHENHYDRAMINE [Concomitant]
     Route: 042
  5. LORAZEPAM [Concomitant]
     Route: 048
  6. ONDANSETRON [Concomitant]
     Route: 042
  7. SOLU-MEDROL [Concomitant]
     Route: 042

REACTIONS (4)
  - CHEST PAIN [None]
  - CORONARY ANGIOPLASTY [None]
  - HYPERSENSITIVITY [None]
  - MYOCARDIAL INFARCTION [None]
